FAERS Safety Report 11253514 (Version 2)
Quarter: 2015Q3

REPORT INFORMATION
  Report Type: Spontaneous
  Country: GB (occurrence: None)
  Receive Date: 20150707
  Receipt Date: 20150722
  Transmission Date: 20151125
  Serious: Yes (Other)
  Sender: FDA-Public Use
  Company Number: 2015-11667

PATIENT
  Sex: Male
  Weight: 69 kg

DRUGS (3)
  1. EYLEA [Suspect]
     Active Substance: AFLIBERCEPT
     Indication: AGE-RELATED MACULAR DEGENERATION
     Dates: start: 20131227
  2. CHLORHEXIDINE (CHLORHEXIDINE) [Concomitant]
     Active Substance: CHLORHEXIDINE
  3. CHLORAMPHENICOL( CHLORAMPHENICOL) [Concomitant]

REACTIONS (3)
  - Blindness [None]
  - Enterococcal infection [None]
  - Endophthalmitis [None]
